FAERS Safety Report 7830319-3 (Version None)
Quarter: 2011Q4

REPORT INFORMATION
  Report Type: 
  Country: None (occurrence: None)
  Receive Date: 20111021
  Receipt Date: 20111013
  Transmission Date: 20120403
  Serious: Yes (Other)
  Sender: FDA-Public Use
  Company Number: JP-BRISTOL-MYERS SQUIBB COMPANY-16169534

PATIENT
  Sex: Female

DRUGS (2)
  1. CISPLATIN [Suspect]
     Indication: OVARIAN CANCER
     Dosage: DOSES:2
     Dates: start: 20040101
  2. TAXOL [Suspect]
     Indication: OVARIAN CANCER
     Dosage: DOSES:5
     Dates: start: 20040101

REACTIONS (3)
  - COMPLEX REGIONAL PAIN SYNDROME [None]
  - ANAPHYLACTIC SHOCK [None]
  - NEUROPATHY PERIPHERAL [None]
